FAERS Safety Report 17905484 (Version 3)
Quarter: 2022Q3

REPORT INFORMATION
  Report Type: Spontaneous
  Country: US (occurrence: None)
  Receive Date: 20200616
  Receipt Date: 20220701
  Transmission Date: 20221026
  Serious: Yes (Other)
  Sender: FDA-Public Use
  Company Number: US-ROCHE-2341510

PATIENT
  Sex: Female

DRUGS (7)
  1. ACTEMRA [Suspect]
     Active Substance: TOCILIZUMAB
     Indication: Giant cell arteritis
     Dosage: 162 MG/ 0.9 ML
     Route: 058
     Dates: start: 20190206
  2. ACTEMRA [Suspect]
     Active Substance: TOCILIZUMAB
     Indication: Rheumatoid arthritis
     Dosage: 162 MG/ 0.9 ML
     Route: 058
     Dates: start: 20190207
  3. ACTEMRA [Suspect]
     Active Substance: TOCILIZUMAB
     Route: 058
     Dates: start: 20191114
  4. TYMLOS [Suspect]
     Active Substance: ABALOPARATIDE
     Indication: Senile osteoporosis
     Route: 058
     Dates: start: 20200212
  5. TYMLOS [Suspect]
     Active Substance: ABALOPARATIDE
     Indication: Rheumatoid arthritis
  6. TYMLOS [Suspect]
     Active Substance: ABALOPARATIDE
     Indication: Osteoarthritis
  7. FAMOTIDINE [Suspect]
     Active Substance: FAMOTIDINE
     Indication: Product used for unknown indication
     Route: 065

REACTIONS (26)
  - Diverticulitis [Unknown]
  - Hypoaesthesia [Unknown]
  - Paraesthesia [Unknown]
  - Dizziness [Unknown]
  - Vertigo [Unknown]
  - Peripheral swelling [Unknown]
  - Depression [Unknown]
  - Irritability [Unknown]
  - Blood triglycerides increased [Unknown]
  - Hypertension [Unknown]
  - Fatigue [Unknown]
  - Oropharyngeal pain [Unknown]
  - Sinus disorder [Unknown]
  - Mouth ulceration [Unknown]
  - Headache [Unknown]
  - Myalgia [Unknown]
  - Arthralgia [Unknown]
  - Weight increased [Unknown]
  - Pulse abnormal [Unknown]
  - Tinnitus [Unknown]
  - Blood calcium increased [Unknown]
  - Insomnia [Unknown]
  - Heart rate increased [Unknown]
  - Blood cholesterol increased [Unknown]
  - Vision blurred [Unknown]
  - Back pain [Unknown]
